FAERS Safety Report 5367063-0 (Version None)
Quarter: 2007Q2

REPORT INFORMATION
  Report Type: 
  Country: None (occurrence: None)
  Receive Date: 20070622
  Receipt Date: 20070614
  Transmission Date: 20071010
  Serious: Yes (Other)
  Sender: FDA-Public Use
  Company Number: B0474752A

PATIENT
  Age: 71 Year
  Sex: Female

DRUGS (1)
  1. AUGMENTIN '125' [Suspect]
     Indication: INFECTED INSECT BITE
     Dosage: 1G TWICE PER DAY
     Route: 048
     Dates: start: 20070324, end: 20070601

REACTIONS (2)
  - ANOSMIA [None]
  - LYMPHADENOPATHY [None]
